FAERS Safety Report 7577316-3 (Version None)
Quarter: 2011Q2

REPORT INFORMATION
  Report Type: 
  Country: None (occurrence: None)
  Receive Date: 20110628
  Receipt Date: 20110117
  Transmission Date: 20111010
  Serious: Yes (Other)
  Sender: FDA-Public Use
  Company Number: US-BAYER-201030472NA

PATIENT
  Age: 24 Year
  Sex: Female
  Weight: 67.574 kg

DRUGS (15)
  1. BUPIVACAINE HCL [Concomitant]
     Indication: ANALGESIC THERAPY
     Dosage: 60 MG, UNK
     Route: 008
     Dates: start: 20080709
  2. EPINEPHRINE [Concomitant]
     Indication: ANALGESIC THERAPY
     Dosage: 0.15 MG, UNK
     Route: 008
     Dates: start: 20080709
  3. ZOLOFT [Concomitant]
     Indication: POSTPARTUM DEPRESSION
  4. MOTRIN [Concomitant]
     Indication: ABDOMINAL PAIN
     Dosage: 600MG/1 TAB EVERY 6 HOURS, PRN
  5. IRON [FERROUS SULFATE] [Concomitant]
  6. YAZ [Suspect]
     Indication: PREMENSTRUAL SYNDROME
  7. PRENATAL VITAMINS [Concomitant]
     Dosage: UNK UNK, QD
     Route: 048
  8. FENTANYL [Concomitant]
     Indication: ANALGESIC THERAPY
     Dosage: 0.25 MG, UNK
     Route: 008
     Dates: start: 20080709
  9. IBUPROFEN [Concomitant]
  10. YAZ [Suspect]
     Indication: ACNE
  11. FLAGYL [Concomitant]
     Dosage: 250 MG, TID
     Route: 048
  12. PITOCIN [Concomitant]
     Indication: LABOUR INDUCTION
     Dosage: UNK
     Route: 042
     Dates: start: 20080709
  13. DARVOCET [Concomitant]
  14. YAZ [Suspect]
     Indication: CONTRACEPTION
     Dosage: UNK UNK, QD
     Route: 048
     Dates: start: 20080815, end: 20080821
  15. MACROBID [Concomitant]
     Dosage: 100 MG, BID
     Route: 048

REACTIONS (4)
  - CHOLECYSTITIS CHRONIC [None]
  - PAIN [None]
  - NAUSEA [None]
  - INJURY [None]
